FAERS Safety Report 20507522 (Version 1)
Quarter: 2022Q1

REPORT INFORMATION
  Report Type: Spontaneous
  Country: US (occurrence: US)
  Receive Date: 20220223
  Receipt Date: 20220223
  Transmission Date: 20220424
  Serious: No
  Sender: FDA-Public Use
  Company Number: US-NOVARTISTESTPH-NVSC2022US038576

PATIENT
  Age: 75 Year
  Sex: Male

DRUGS (1)
  1. VALSARTAN [Suspect]
     Active Substance: VALSARTAN
     Indication: Cardiac failure
     Dosage: UNK
     Route: 048
     Dates: start: 20220201

REACTIONS (1)
  - Blood pressure increased [Unknown]

NARRATIVE: CASE EVENT DATE: 20220203
